FAERS Safety Report 10393398 (Version 1)
Quarter: 2014Q3

REPORT INFORMATION
  Report Type: Spontaneous
  Country: DE (occurrence: DE)
  Receive Date: 20140819
  Receipt Date: 20140819
  Transmission Date: 20150326
  Serious: Yes (Other)
  Sender: FDA-Public Use
  Company Number: DE-ASTRAZENECA-2014SE58689

PATIENT
  Age: 3 Year
  Sex: Female
  Weight: 15 kg

DRUGS (6)
  1. SUFENTANIL [Concomitant]
     Active Substance: SUFENTANIL
     Indication: SEDATION
     Dosage: 3 ?G/KG*H
     Route: 041
     Dates: start: 20140711, end: 20140725
  2. KETAMINE [Concomitant]
     Active Substance: KETAMINE
     Indication: SEDATION
     Route: 041
     Dates: start: 20140712, end: 20140714
  3. DOBUTAMIN [Concomitant]
     Indication: BLOOD CATECHOLAMINES ABNORMAL
     Dosage: 5 ?G/KG*MIN
     Route: 041
     Dates: start: 20140711, end: 20140715
  4. NOREPINEPHRINE [Concomitant]
     Active Substance: NOREPINEPHRINE\NOREPINEPHRINE BITARTRATE
     Indication: BLOOD CATECHOLAMINES ABNORMAL
     Dosage: 0.2 ?G/KG*MIN
     Route: 041
     Dates: start: 20140711, end: 20140720
  5. MIDAZOLAM [Concomitant]
     Active Substance: MIDAZOLAM\MIDAZOLAM HYDROCHLORIDE
     Indication: SEDATION
     Route: 041
     Dates: start: 20140711, end: 20140725
  6. PROPOFOL. [Suspect]
     Active Substance: PROPOFOL
     Indication: SEDATION
     Dosage: 3-4 MG/KG*H
     Route: 041
     Dates: start: 20140711, end: 20140720

REACTIONS (2)
  - Hepatic enzyme increased [Recovered/Resolved]
  - Rhabdomyolysis [Recovered/Resolved]

NARRATIVE: CASE EVENT DATE: 20140720
